FAERS Safety Report 8245664-X (Version None)
Quarter: 2012Q1

REPORT INFORMATION
  Report Type: 
  Country: None (occurrence: None)
  Receive Date: 20120330
  Receipt Date: 20120322
  Transmission Date: 20120608
  Serious: No
  Sender: FDA-Public Use
  Company Number: US-BIOGENIDEC-2011BI045744

PATIENT
  Sex: Female

DRUGS (1)
  1. TYSABRI [Suspect]
     Indication: MULTIPLE SCLEROSIS
     Route: 042
     Dates: start: 20110110, end: 20111229

REACTIONS (15)
  - NAUSEA [None]
  - MULTIPLE SCLEROSIS [None]
  - FIBROMYALGIA [None]
  - ABDOMINAL PAIN UPPER [None]
  - CD4 LYMPHOCYTES ABNORMAL [None]
  - DIARRHOEA [None]
  - COLITIS [None]
  - CHEST PAIN [None]
  - INFLUENZA LIKE ILLNESS [None]
  - PNEUMONIA [None]
  - DYSPNOEA [None]
  - VOMITING [None]
  - WEIGHT INCREASED [None]
  - PAIN [None]
  - FATIGUE [None]
